FAERS Safety Report 4580531-4 (Version None)
Quarter: 2005Q1

REPORT INFORMATION
  Report Type: 
  Country: None (occurrence: None)
  Receive Date: 20050214
  Receipt Date: 20040217
  Transmission Date: 20050727
  Serious: No
  Sender: FDA-Public Use
  Company Number: US-GLAXOSMITHKLINE-A0498553A

PATIENT
  Age: 58 Year
  Sex: Male

DRUGS (10)
  1. LAMICTAL [Suspect]
     Indication: BIPOLAR DISORDER
     Dosage: 200MG PER DAY
     Route: 048
     Dates: start: 20030601, end: 20031021
  2. MULTI-VITAMINS [Concomitant]
  3. VITAMIN E [Concomitant]
  4. VITAMIN C [Concomitant]
  5. VITAMIN B COMPLEX CAP [Concomitant]
  6. ZINC [Concomitant]
  7. ULTRAM [Concomitant]
  8. ASPIRIN [Concomitant]
  9. LIPITOR [Concomitant]
  10. DRIXORAL [Concomitant]

REACTIONS (5)
  - BACK INJURY [None]
  - DIZZINESS [None]
  - DYSGEUSIA [None]
  - HYPERTENSION [None]
  - PAROSMIA [None]
